FAERS Safety Report 22235696 (Version 1)
Quarter: 2023Q2

REPORT INFORMATION
  Report Type: Spontaneous
  Country: US (occurrence: US)
  Receive Date: 20230420
  Receipt Date: 20230420
  Transmission Date: 20230721
  Serious: Yes (Other)
  Sender: FDA-Public Use
  Company Number: US-JNJFOC-20230421465

PATIENT
  Age: 62 Year
  Sex: Female

DRUGS (1)
  1. ELMIRON [Suspect]
     Active Substance: PENTOSAN POLYSULFATE SODIUM
     Indication: Cystitis interstitial
     Route: 048
     Dates: start: 2000, end: 2014

REACTIONS (6)
  - Maculopathy [Unknown]
  - Subretinal fluid [Unknown]
  - Retinal cyst [Unknown]
  - Retinal depigmentation [Unknown]
  - Retinal pigmentation [Unknown]
  - Off label use [Unknown]
